FAERS Safety Report 8401895-7 (Version None)
Quarter: 2012Q2

REPORT INFORMATION
  Report Type: 
  Country: None (occurrence: None)
  Receive Date: 20120601
  Receipt Date: 20110708
  Transmission Date: 20120825
  Serious: No
  Sender: FDA-Public Use
  Company Number: US-ABBOTT-11P-163-0837936-00

PATIENT
  Age: 33 Year
  Sex: Male

DRUGS (2)
  1. MARINOL [Suspect]
     Indication: PROPHYLAXIS
  2. MARINOL [Suspect]
     Indication: DRUG DEPENDENCE
     Dates: start: 20110501

REACTIONS (1)
  - DRUG LEVEL INCREASED [None]
